FAERS Safety Report 9015843 (Version 3)
Quarter: 2013Q2

REPORT INFORMATION
  Report Type: Report from Study
  Country: US (occurrence: US)
  Receive Date: 20130116
  Receipt Date: 20130415
  Transmission Date: 20140414
  Serious: Yes (Other)
  Sender: FDA-Public Use
  Company Number: PHEH2013US001098

PATIENT
  Age: 34 Year
  Sex: Female
  Weight: 57.6 kg

DRUGS (12)
  1. GILENYA [Suspect]
     Indication: MULTIPLE SCLEROSIS
     Dosage: 0.5 MG, QD
     Route: 048
     Dates: start: 20130109
  2. LEVOTHYROXIN [Concomitant]
     Dosage: 150 UG, QD
     Route: 048
  3. KEFLEX [Concomitant]
     Dosage: 250 MG, UNK
     Route: 048
  4. MULTI-VIT [Concomitant]
     Dosage: 1 DF, QD
     Route: 048
  5. AMANTADIN [Concomitant]
  6. PROVIGIL [Concomitant]
  7. CAFFEINE [Concomitant]
  8. DHA [Concomitant]
  9. FISH OIL [Concomitant]
  10. CLA [Concomitant]
  11. ARICEPT [Concomitant]
  12. LUNESTA [Concomitant]
     Indication: INSOMNIA
     Dosage: 1 MG, UNK
     Route: 048

REACTIONS (15)
  - Blood pressure decreased [Not Recovered/Not Resolved]
  - Heart rate decreased [Not Recovered/Not Resolved]
  - Urinary tract infection [Unknown]
  - Neurogenic bladder [Unknown]
  - Nausea [Recovering/Resolving]
  - Fatigue [Not Recovered/Not Resolved]
  - Malaise [Not Recovered/Not Resolved]
  - Somnolence [Unknown]
  - Pain [Recovering/Resolving]
  - Influenza like illness [Unknown]
  - Depression [Unknown]
  - Headache [Unknown]
  - Back pain [Unknown]
  - Dizziness [Not Recovered/Not Resolved]
  - Pruritus [Unknown]
